FAERS Safety Report 8776354 (Version 1)
Quarter: 2012Q4

REPORT INFORMATION
  Report Type: 
  Country: DE (occurrence: DE)
  Receive Date: 20120910
  Receipt Date: 20120910
  Transmission Date: 20130627
  Serious: Yes (Other)
  Sender: FDA-Public Use
  Company Number: DE-ROCHE-1114844

PATIENT

DRUGS (7)
  1. AVASTIN [Suspect]
     Indication: COLORECTAL CANCER METASTATIC
     Route: 042
  2. AVASTIN [Suspect]
     Route: 065
  3. AVASTIN [Suspect]
     Route: 065
  4. FOLINIC ACID [Suspect]
     Indication: COLORECTAL CANCER METASTATIC
     Route: 042
  5. FLUOROURACIL [Suspect]
     Indication: COLORECTAL CANCER METASTATIC
     Route: 040
  6. FLUOROURACIL [Suspect]
     Route: 041
  7. IRINOTECAN HYDROCHLORIDE [Suspect]
     Indication: COLORECTAL CANCER METASTATIC
     Route: 042

REACTIONS (14)
  - Anaemia [Unknown]
  - Leukopenia [Unknown]
  - Neutropenia [Unknown]
  - Hypertension [Unknown]
  - Nausea [Unknown]
  - Infection [Unknown]
  - Diarrhoea [Unknown]
  - Deep vein thrombosis [Unknown]
  - Stomatitis [Unknown]
  - Hepatotoxicity [Unknown]
  - Pulmonary embolism [Unknown]
  - Pain [Unknown]
  - Hypokalaemia [Unknown]
  - Haemorrhage [Unknown]
